FAERS Safety Report 9354776 (Version 1)
Quarter: 2013Q2

REPORT INFORMATION
  Report Type: Spontaneous
  Country: US (occurrence: US)
  Receive Date: 20130619
  Receipt Date: 20130619
  Transmission Date: 20140414
  Serious: No
  Sender: FDA-Public Use
  Company Number: US-009507513-1306USA006205

PATIENT
  Age: 22 Year
  Sex: Female

DRUGS (1)
  1. IMPLANON [Suspect]
     Indication: CONTRACEPTION
     Dosage: FREQUENCY: 1 ROD FOR 3 YEARS
     Route: 059
     Dates: start: 20100802

REACTIONS (4)
  - Mood altered [Unknown]
  - Hypomenorrhoea [Unknown]
  - Menorrhagia [Unknown]
  - Back pain [Unknown]
